FAERS Safety Report 6007019-8 (Version None)
Quarter: 2008Q4

REPORT INFORMATION
  Report Type: 
  Country: None (occurrence: None)
  Receive Date: 20081217
  Receipt Date: 20071220
  Transmission Date: 20090506
  Serious: No
  Sender: FDA-Public Use
  Company Number: US-ASTRAZENECA-2007UW28796

PATIENT
  Age: 694 Month
  Sex: Female
  Weight: 48.1 kg

DRUGS (10)
  1. CRESTOR [Suspect]
     Indication: BLOOD CHOLESTEROL INCREASED
     Route: 048
     Dates: start: 20061001, end: 20071001
  2. CRESTOR [Suspect]
     Route: 048
     Dates: start: 20071001, end: 20071217
  3. CRESTOR [Suspect]
     Route: 048
     Dates: start: 20071217
  4. SYNTHROID [Concomitant]
  5. XANAX [Concomitant]
  6. ACYCLOVIR [Concomitant]
  7. ACTONEL [Concomitant]
  8. ACTOS [Concomitant]
  9. GLUCOVANCE [Concomitant]
  10. CHLORZOXAZONE [Concomitant]

REACTIONS (4)
  - ABDOMINAL PAIN UPPER [None]
  - MEDICATION ERROR [None]
  - NAUSEA [None]
  - RASH [None]
